FAERS Safety Report 23701885 (Version 1)
Quarter: 2024Q2

REPORT INFORMATION
  Report Type: Spontaneous
  Country: IT (occurrence: IT)
  Receive Date: 20240403
  Receipt Date: 20240403
  Transmission Date: 20240716
  Serious: Yes (Other)
  Sender: FDA-Public Use
  Company Number: None

PATIENT
  Age: 38 Year
  Sex: Male

DRUGS (1)
  1. IBUPROFEN [Suspect]
     Active Substance: IBUPROFEN
     Indication: Toothache
     Dosage: THE DOSE, PHARMACEUTICAL FORM AND POSSIBLE PHARMACEUTICAL COMPANY OF IBUPROFEN ARE NOT SPECIFIED.
     Route: 048
     Dates: start: 20230628

REACTIONS (4)
  - Tongue oedema [Recovering/Resolving]
  - Lip oedema [Recovering/Resolving]
  - Eyelid oedema [Recovering/Resolving]
  - Erythema [Recovering/Resolving]

NARRATIVE: CASE EVENT DATE: 20230628
